FAERS Safety Report 8766838 (Version 3)
Quarter: 2012Q4

REPORT INFORMATION
  Report Type: 
  Country: US (occurrence: US)
  Receive Date: 20120903
  Receipt Date: 20121221
  Transmission Date: 20130627
  Serious: Yes (Other)
  Sender: FDA-Public Use
  Company Number: US-BAYER-2012-090895

PATIENT
  Age: 62 Year
  Sex: Female
  Weight: 72.56 kg

DRUGS (3)
  1. ALEVE CAPLET/TABLET,MIDOL EXTENDED RELIEF CAPLET [Suspect]
     Indication: BACK ACHE
     Dosage: 1 DF, QD
     Route: 048
     Dates: start: 201101
  2. ALEVE CAPLET/TABLET,MIDOL EXTENDED RELIEF CAPLET [Suspect]
     Indication: BACK ACHE
     Dosage: 1 DF, QD
     Route: 048
  3. ENALAPRIL [Concomitant]

REACTIONS (5)
  - Renal impairment [Not Recovered/Not Resolved]
  - Drug ineffective [None]
  - Renal disorder [None]
  - Thyroid disorder [None]
  - Incorrect drug administration duration [None]
